FAERS Safety Report 7920120-4 (Version None)
Quarter: 2011Q4

REPORT INFORMATION
  Report Type: 
  Country: None (occurrence: None)
  Receive Date: 20111117
  Receipt Date: 20111116
  Transmission Date: 20120403
  Serious: Yes (Other)
  Sender: FDA-Public Use
  Company Number: CN-ROCHE-1013870

PATIENT
  Sex: Male

DRUGS (2)
  1. PEGINTERFERON ALFA-2A [Suspect]
     Indication: HEPATITIS B
     Route: 058
     Dates: start: 20111006, end: 20111020
  2. PEGINTERFERON ALFA-2A [Suspect]
     Route: 058
     Dates: start: 20111027

REACTIONS (1)
  - NEUTROPHIL COUNT DECREASED [None]
